FAERS Safety Report 6166097-6 (Version None)
Quarter: 2009Q2

REPORT INFORMATION
  Report Type: 
  Country: None (occurrence: None)
  Receive Date: 20090424
  Receipt Date: 20090415
  Transmission Date: 20091009
  Serious: Yes (Death)
  Sender: FDA-Public Use
  Company Number: US-JNJFOC-20080806202

PATIENT
  Sex: Male
  Weight: 116.12 kg

DRUGS (8)
  1. DURAGESIC-100 [Suspect]
     Route: 062
  2. DURAGESIC-100 [Suspect]
     Route: 062
  3. DURAGESIC-100 [Suspect]
     Route: 062
  4. DURAGESIC-100 [Suspect]
     Route: 062
  5. DURAGESIC-100 [Suspect]
     Route: 062
  6. DURAGESIC-100 [Suspect]
     Route: 062
  7. DURAGESIC-100 [Suspect]
     Indication: PAIN
     Route: 062
  8. ULTRAM [Concomitant]
     Indication: PAIN

REACTIONS (12)
  - ARTERIOSCLEROSIS CORONARY ARTERY [None]
  - ASPIRATION [None]
  - CARDIAC ARREST [None]
  - DRUG INEFFECTIVE [None]
  - FOAMING AT MOUTH [None]
  - INAPPROPRIATE SCHEDULE OF DRUG ADMINISTRATION [None]
  - LEFT VENTRICULAR HYPERTROPHY [None]
  - NARCOTIC INTOXICATION [None]
  - OVERDOSE [None]
  - PULMONARY OEDEMA [None]
  - SEDATION [None]
  - VOMITING [None]
